FAERS Safety Report 7750252-5 (Version None)
Quarter: 2011Q3

REPORT INFORMATION
  Report Type: 
  Country: None (occurrence: None)
  Receive Date: 20110912
  Receipt Date: 20110825
  Transmission Date: 20111222
  Serious: Yes (Other)
  Sender: FDA-Public Use
  Company Number: GER/UKI/11/0020816

PATIENT
  Age: 54 Year
  Sex: Female

DRUGS (5)
  1. GEMCITABINE [Suspect]
     Indication: PANCREATIC CARCINOMA
     Dosage: 1880 MG, INTRAVENOUS
     Route: 042
     Dates: start: 20101210, end: 20110520
  2. CO-DYDRAMOL [Concomitant]
  3. METOCLOPRAMIDE [Concomitant]
  4. LOPERAMIDE HCL [Concomitant]
  5. FUROSEMIDE [Concomitant]

REACTIONS (2)
  - OEDEMA PERIPHERAL [None]
  - MOBILITY DECREASED [None]
